FAERS Safety Report 9254719 (Version 2)
Quarter: 2013Q2

REPORT INFORMATION
  Report Type: Spontaneous
  Country: US (occurrence: None)
  Receive Date: 20130418
  Receipt Date: 20130619
  Transmission Date: 20140414
  Serious: Yes (Hospitalization)
  Sender: FDA-Public Use
  Company Number: JPI-P-031100

PATIENT
  Age: 37 Year
  Sex: Female
  Weight: 76.2 kg

DRUGS (2)
  1. XYREM [Suspect]
     Indication: CATAPLEXY
     Dosage: 4.5 GM (2.25 GM,2 IN 1 D),ORAL
     Route: 048
     Dates: start: 20070808
  2. ARMODAFINIL [Concomitant]

REACTIONS (4)
  - Abnormal behaviour [None]
  - Psychotic disorder [None]
  - Bipolar disorder [None]
  - Mania [None]
